FAERS Safety Report 8372548-9 (Version None)
Quarter: 2012Q2

REPORT INFORMATION
  Report Type: 
  Country: None (occurrence: None)
  Receive Date: 20120521
  Receipt Date: 20120515
  Transmission Date: 20120825
  Serious: Yes (Other)
  Sender: FDA-Public Use
  Company Number: PHHY2012BR042499

PATIENT
  Sex: Female

DRUGS (1)
  1. FORMOTEROL FUMARATE [Suspect]
     Indication: DYSPNOEA
     Dosage: 1 DF, Q12H
     Dates: start: 20111001

REACTIONS (3)
  - MUSCULOSKELETAL PAIN [None]
  - FALL [None]
  - JOINT INJURY [None]
